FAERS Safety Report 4991096-7 (Version None)
Quarter: 2006Q1

REPORT INFORMATION
  Report Type: 
  Country: None (occurrence: None)
  Receive Date: 20060314
  Receipt Date: 20060131
  Transmission Date: 20060701
  Serious: No
  Sender: FDA-Public Use
  Company Number: 2006-00184

PATIENT
  Sex: Female

DRUGS (1)
  1. VELCADE [Suspect]

REACTIONS (2)
  - INFLUENZA LIKE ILLNESS [None]
  - INSOMNIA [None]
